FAERS Safety Report 26087803 (Version 1)
Quarter: 2025Q4

REPORT INFORMATION
  Report Type: Spontaneous
  Country: EU (occurrence: EU)
  Receive Date: 20251125
  Receipt Date: 20251125
  Transmission Date: 20260117
  Serious: Yes (Other)
  Sender: PFIZER
  Company Number: None

PATIENT
  Age: 64 Year
  Sex: Female

DRUGS (1)
  1. METHYLPREDNISOLONE ACETATE [Suspect]
     Active Substance: METHYLPREDNISOLONE ACETATE
     Indication: Osteoarthritis
     Dosage: KORTISONSPRUTA I BAGGE AXLARNA
     Dates: start: 20251020, end: 20251020

REACTIONS (5)
  - Muscular weakness [Unknown]
  - Injected limb mobility decreased [Unknown]
  - Paraesthesia [Unknown]
  - Arthralgia [Unknown]
  - Myalgia [Unknown]

NARRATIVE: CASE EVENT DATE: 20251020
